FAERS Safety Report 17112497 (Version 1)
Quarter: 2019Q4

REPORT INFORMATION
  Report Type: Spontaneous
  Country: IT (occurrence: IT)
  Receive Date: 20191204
  Receipt Date: 20191204
  Transmission Date: 20200122
  Serious: Yes (Death)
  Sender: FDA-Public Use
  Company Number: IT-ELI_LILLY_AND_COMPANY-IT201912000340

PATIENT
  Age: 72 Year
  Sex: Female
  Weight: 87 kg

DRUGS (2)
  1. ABEMACICLIB [Suspect]
     Active Substance: ABEMACICLIB
     Indication: BREAST CANCER STAGE IV
     Route: 048
     Dates: start: 20191003, end: 20191106
  2. FULVESTRANT. [Concomitant]
     Active Substance: FULVESTRANT
     Indication: BREAST CANCER STAGE IV
     Dosage: 500 MG, UNKNOWN
     Route: 030
     Dates: start: 20191003, end: 20191105

REACTIONS (7)
  - Diarrhoea [Fatal]
  - Multiple organ dysfunction syndrome [Fatal]
  - Acute kidney injury [Fatal]
  - Thrombosis [Fatal]
  - Sepsis [Fatal]
  - Dehydration [Fatal]
  - Neutropenia [Fatal]

NARRATIVE: CASE EVENT DATE: 20191106
